FAERS Safety Report 8541830-4 (Version None)
Quarter: 2012Q3

REPORT INFORMATION
  Report Type: 
  Country: None (occurrence: None)
  Receive Date: 20120726
  Receipt Date: 20110902
  Transmission Date: 20120928
  Serious: No
  Sender: FDA-Public Use
  Company Number: US-ASTRAZENECA-2011SE53116

PATIENT
  Age: 31 Year
  Sex: Female
  Weight: 77.1 kg

DRUGS (3)
  1. SEROQUEL XR [Suspect]
     Indication: BIPOLAR DISORDER
     Route: 048
     Dates: start: 20090101
  2. TRAZODONE HCL [Concomitant]
     Indication: BIPOLAR DISORDER
  3. POPAMAS [Concomitant]
     Indication: BIPOLAR DISORDER

REACTIONS (5)
  - DRUG DOSE OMISSION [None]
  - DYSARTHRIA [None]
  - EMOTIONAL DISORDER [None]
  - MANIA [None]
  - INSOMNIA [None]
